FAERS Safety Report 9744319 (Version 1)
Quarter: 2013Q4

REPORT INFORMATION
  Report Type: Spontaneous
  Country: IT (occurrence: IT)
  Receive Date: 20131210
  Receipt Date: 20131210
  Transmission Date: 20140711
  Serious: Yes (Other)
  Sender: FDA-Public Use
  Company Number: IT-MYLANLABS-2013S1026966

PATIENT
  Age: 75 Year
  Sex: Male

DRUGS (3)
  1. AZITHROMYCIN [Suspect]
     Indication: WOUND INFECTION
     Route: 048
     Dates: start: 20130806, end: 20130811
  2. CEFTRIAXONE [Suspect]
     Indication: WOUND INFECTION
     Route: 030
     Dates: start: 20130812, end: 20130815
  3. GENTALYN [Concomitant]
     Indication: PRODUCT USED FOR UNKNOWN INDICATION

REACTIONS (2)
  - Rash [Recovering/Resolving]
  - Oedema genital [Recovering/Resolving]
